FAERS Safety Report 25406709 (Version 1)
Quarter: 2025Q2

REPORT INFORMATION
  Report Type: Spontaneous
  Country: CN (occurrence: CN)
  Receive Date: 20250606
  Receipt Date: 20250606
  Transmission Date: 20250717
  Serious: Yes (Other)
  Sender: Kenvue
  Company Number: CN-KENVUE-20250600659

PATIENT

DRUGS (2)
  1. MOTRIN INFANTS [Suspect]
     Active Substance: IBUPROFEN
     Indication: Pyrexia
     Dosage: 10 MILLILITER (48 MG), ONCE A DAY
     Route: 048
     Dates: start: 20250517, end: 20250520
  2. CEFACLOR [Suspect]
     Active Substance: CEFACLOR
     Indication: Pneumonia
     Dosage: 0.030 GRAM, THRICE A DAY
     Route: 048
     Dates: start: 20250518, end: 20250520

REACTIONS (5)
  - Hepatic failure [Recovering/Resolving]
  - Swelling face [Recovering/Resolving]
  - Pruritus [Recovering/Resolving]
  - Rash erythematous [Recovering/Resolving]
  - Swelling of eyelid [Recovering/Resolving]

NARRATIVE: CASE EVENT DATE: 20250520
